FAERS Safety Report 4810587-2 (Version None)
Quarter: 2005Q4

REPORT INFORMATION
  Report Type: 
  Country: None (occurrence: None)
  Receive Date: 20051025
  Receipt Date: 20051025
  Transmission Date: 20060501
  Serious: Yes (Life-Threatening)
  Sender: FDA-Public Use
  Company Number: None

PATIENT
  Age: 20 Year
  Sex: Male
  Weight: 88.4514 kg

DRUGS (2)
  1. FENTANYL [Suspect]
     Indication: CONVULSION
     Dosage: 150 MG 72HRS TRANSDERMAL
     Route: 062
     Dates: start: 20050410, end: 20050910
  2. FENTANYL [Suspect]
     Indication: NERVOUS SYSTEM DISORDER
     Dosage: 150 MG 72HRS TRANSDERMAL
     Route: 062
     Dates: start: 20050410, end: 20050910

REACTIONS (4)
  - ANOREXIA [None]
  - CACHEXIA [None]
  - MUSCLE ATROPHY [None]
  - WEIGHT DECREASED [None]
